FAERS Safety Report 24378194 (Version 2)
Quarter: 2024Q4

REPORT INFORMATION
  Report Type: Report from Study
  Country: US (occurrence: US)
  Receive Date: 20240930
  Receipt Date: 20241105
  Transmission Date: 20250115
  Serious: Yes (Other)
  Sender: TAKEDA
  Company Number: US-TAKEDA-2024TUS096419

PATIENT
  Age: 65 Year
  Sex: Female

DRUGS (8)
  1. TEDUGLUTIDE [Suspect]
     Active Substance: TEDUGLUTIDE
     Indication: Short-bowel syndrome
     Dosage: .35 MILLILITER, QD
     Route: 058
     Dates: start: 20240925
  2. TEDUGLUTIDE [Suspect]
     Active Substance: TEDUGLUTIDE
     Indication: Short-bowel syndrome
     Dosage: .35 MILLILITER, QD
     Route: 058
     Dates: start: 20240925
  3. TEDUGLUTIDE [Suspect]
     Active Substance: TEDUGLUTIDE
     Indication: Short-bowel syndrome
     Dosage: .35 MILLILITER, QD
     Route: 058
     Dates: start: 20240925
  4. TEDUGLUTIDE [Suspect]
     Active Substance: TEDUGLUTIDE
     Indication: Short-bowel syndrome
     Dosage: .35 MILLILITER, QD
     Route: 058
     Dates: start: 20240925
  5. TEDUGLUTIDE [Suspect]
     Active Substance: TEDUGLUTIDE
     Dosage: .35 MILLILITER, QD
     Route: 058
     Dates: start: 202409
  6. TEDUGLUTIDE [Suspect]
     Active Substance: TEDUGLUTIDE
     Dosage: .35 MILLILITER, QD
     Route: 058
     Dates: start: 202409
  7. TEDUGLUTIDE [Suspect]
     Active Substance: TEDUGLUTIDE
     Dosage: .35 MILLILITER, QD
     Route: 058
     Dates: start: 202409
  8. TEDUGLUTIDE [Suspect]
     Active Substance: TEDUGLUTIDE
     Dosage: .35 MILLILITER, QD
     Route: 058
     Dates: start: 202409

REACTIONS (7)
  - Impaired gastric emptying [Unknown]
  - Injection site irritation [Not Recovered/Not Resolved]
  - Injection site discharge [Unknown]
  - Product use issue [Unknown]
  - Injection site pain [Not Recovered/Not Resolved]
  - Vomiting [Unknown]
  - Abdominal distension [Unknown]

NARRATIVE: CASE EVENT DATE: 20240925
